FAERS Safety Report 8504753-2 (Version None)
Quarter: 2012Q3

REPORT INFORMATION
  Report Type: 
  Country: None (occurrence: None)
  Receive Date: 20120712
  Receipt Date: 20120702
  Transmission Date: 20120928
  Serious: Yes (Other)
  Sender: FDA-Public Use
  Company Number: TR-AMGEN-TURSP2012041516

PATIENT
  Age: 3 Year
  Sex: Female

DRUGS (1)
  1. ENBREL [Suspect]
     Indication: JUVENILE ARTHRITIS
     Dosage: UNK MG, WEEKLY
     Route: 058
     Dates: start: 20120401

REACTIONS (2)
  - LOWER LIMB FRACTURE [None]
  - PRURITUS GENERALISED [None]
